FAERS Safety Report 4791135-2 (Version None)
Quarter: 2005Q4

REPORT INFORMATION
  Report Type: 
  Country: None (occurrence: None)
  Receive Date: 20051005
  Receipt Date: 20050919
  Transmission Date: 20060501
  Serious: Yes (Hospitalization)
  Sender: FDA-Public Use
  Company Number: ERD2002A00089

PATIENT
  Age: 57 Year
  Sex: Male

DRUGS (9)
  1. PIOGLITAZONE HYDROCHLORIDE (PLACEBO) [Suspect]
     Indication: DIABETES MELLITUS NON-INSULIN-DEPENDENT
     Dosage: BLIND ORAL
     Route: 048
     Dates: start: 20011023
  2. GLUCOBAY [Concomitant]
  3. METPHORMAX        (METFORMIN HYDROCHLORIDE) [Concomitant]
  4. DIAPREL (GLICLAZIDE) [Concomitant]
  5. ATENOLOL [Concomitant]
  6. GOPTEN (TRANDOLAPRIL) [Concomitant]
  7. ATORVASTATIN CALCIUM [Concomitant]
  8. LIPANTHYL                     (FENOFIBRATE) [Concomitant]
  9. ASPIRIN [Concomitant]

REACTIONS (3)
  - ASTHENIA [None]
  - DIABETES MELLITUS INADEQUATE CONTROL [None]
  - URINARY TRACT INFECTION [None]
